FAERS Safety Report 22356759 (Version 11)
Quarter: 2023Q4

REPORT INFORMATION
  Report Type: Spontaneous
  Country: DE (occurrence: DE)
  Receive Date: 20230523
  Receipt Date: 20231114
  Transmission Date: 20240110
  Serious: Yes (Life-Threatening, Other)
  Sender: FDA-Public Use
  Company Number: DE-BoehringerIngelheim-2023-BI-239207

PATIENT
  Age: 86 Year
  Sex: Female
  Weight: 56 kg

DRUGS (50)
  1. CLONIDINE [Suspect]
     Active Substance: CLONIDINE
     Indication: Coronary artery disease
     Route: 042
     Dates: start: 20000913, end: 20000913
  2. CLONIDINE [Suspect]
     Active Substance: CLONIDINE
     Indication: Hypertension
  3. OMEPRAZOLE MAGNESIUM [Suspect]
     Active Substance: OMEPRAZOLE MAGNESIUM
     Indication: Prophylaxis against gastrointestinal ulcer
     Route: 048
     Dates: start: 20000820, end: 20000917
  4. NOVALGIN (METAMIZOLE SODIUM) [Suspect]
     Active Substance: METAMIZOLE SODIUM
     Indication: Pain
     Dosage: 20 GTT
     Route: 048
     Dates: start: 20000820, end: 20000917
  5. VIOXX [Suspect]
     Active Substance: ROFECOXIB
     Indication: Rheumatic disorder
     Dosage: CUMULATIVE DOSE 250 MILLIGRAM
     Route: 048
     Dates: start: 20000907, end: 20000917
  6. VIOXX [Suspect]
     Active Substance: ROFECOXIB
     Indication: Rheumatic disorder
  7. NOREPINEPHRINE\NOREPINEPHRINE BITARTRATE [Suspect]
     Active Substance: NOREPINEPHRINE\NOREPINEPHRINE BITARTRATE
     Indication: Preoperative care
     Dosage: 1 DF
     Route: 042
     Dates: start: 20000913, end: 20000913
  8. NOREPINEPHRINE\NOREPINEPHRINE BITARTRATE [Suspect]
     Active Substance: NOREPINEPHRINE\NOREPINEPHRINE BITARTRATE
     Indication: Coronary artery disease
  9. LIDOCAINE HYDROCHLORIDE [Suspect]
     Active Substance: DEXTROSE MONOHYDRATE\EPINEPHRINE\EPINEPHRINE BITARTRATE\LIDOCAINE\LIDOCAINE HYDROCHLORIDE\LIDOCAINE
     Indication: Local anaesthesia
     Route: 058
     Dates: start: 20000913, end: 20000913
  10. DIAZEPAM [Suspect]
     Active Substance: DIAZEPAM
     Indication: Sedation
     Dosage: ENDOTRACHEOPULMONARY INSTILLATION, ?SUSPENSION (PDF-11603000)
     Route: 042
     Dates: start: 20000913, end: 20000913
  11. PLAVIX [Suspect]
     Active Substance: CLOPIDOGREL BISULFATE
     Indication: Anticoagulation drug level abnormal
     Dosage: 1 DF?CUMULATIVE DOSE : 4 DF?POWDER FOR INFUSION (PFT -22120)
     Route: 048
     Dates: start: 20000913, end: 20000917
  12. PLAVIX [Suspect]
     Active Substance: CLOPIDOGREL BISULFATE
     Indication: Thrombosis prophylaxis
  13. PLAVIX [Suspect]
     Active Substance: CLOPIDOGREL BISULFATE
     Indication: Coagulopathy
  14. LORMETAZEPAM [Suspect]
     Active Substance: LORMETAZEPAM
     Indication: Sedation
     Dosage: 2 DF?POWDER FOR ORAL ?SUSPENSION
     Route: 048
     Dates: start: 20000913, end: 20000913
  15. MOLSIDOMINE [Suspect]
     Active Substance: MOLSIDOMINE
     Indication: Coronary artery disease
     Dosage: CUMULATIVE DOSE AT 1ST REACTION: 208 MILLIGRAM
     Route: 042
     Dates: start: 20000820, end: 20000914
  16. INSULIN NOS [Suspect]
     Active Substance: INSULIN NOS
     Indication: Diabetes mellitus
     Route: 058
     Dates: start: 20000913, end: 20000913
  17. FRAGMIN [Suspect]
     Active Substance: DALTEPARIN SODIUM
     Indication: Coagulopathy
     Route: 058
     Dates: start: 20000820, end: 20000917
  18. FRAGMIN [Suspect]
     Active Substance: DALTEPARIN SODIUM
     Indication: Thrombosis prophylaxis
  19. PREDNISONE [Suspect]
     Active Substance: PREDNISONE
     Indication: Dermatitis bullous
     Route: 048
  20. PREDNISONE [Suspect]
     Active Substance: PREDNISONE
     Indication: Pemphigoid
  21. TORSEMIDE [Suspect]
     Active Substance: TORSEMIDE
     Indication: Cardiac failure
     Dosage: CUMULATIVE DOSE140 MILLIGRAM
     Route: 048
     Dates: start: 20000820, end: 20000917
  22. GLYBURIDE [Suspect]
     Active Substance: GLYBURIDE
     Indication: Diabetes mellitus
     Dosage: 3 DF
     Dates: start: 20000820, end: 20000917
  23. ESTRIOL [Suspect]
     Active Substance: ESTRIOL
     Indication: Vulvovaginal disorder
     Dosage: 1 DF?CUMULATIVE DOSE 18 DF
     Dates: start: 20000820, end: 20000906
  24. CLEMASTINE FUMARATE [Suspect]
     Active Substance: CLEMASTINE FUMARATE
     Indication: Pemphigoid
     Dosage: 2 DF?CUMULATIVE DOSE : 18 DF
     Dates: start: 20000820, end: 20000828
  25. ISOSORBIDE MONONITRATE [Suspect]
     Active Substance: ISOSORBIDE MONONITRATE
     Indication: Angina pectoris
     Dosage: 1 DF?CUMULATIVE DOSE 28 DF
     Route: 048
     Dates: start: 20000820, end: 20000917
  26. ASPIRIN [Suspect]
     Active Substance: ASPIRIN
     Indication: Coagulopathy
     Dosage: CUMULATIVE DOSE 700 MILLIGRAM
     Dates: start: 20000914, end: 20000917
  27. NORTRIPTYLINE [Suspect]
     Active Substance: NORTRIPTYLINE
     Indication: Coronary artery disease
     Route: 042
     Dates: start: 20000913, end: 20000913
  28. ROFECOXIB [Suspect]
     Active Substance: ROFECOXIB
     Indication: Rheumatic disorder
     Dates: start: 20000907, end: 20000917
  29. MOLSIDOMINE [Suspect]
     Active Substance: MOLSIDOMINE
     Indication: Coronary artery disease
     Route: 048
     Dates: start: 20000820, end: 20000914
  30. FENTANYL [Concomitant]
     Active Substance: FENTANYL\FENTANYL CITRATE
     Indication: Pain
     Dosage: CUMULATIVE DOSE : 9 DF
     Route: 042
     Dates: start: 20000820, end: 20000916
  31. CALCIUM  BRAUSETABLETTEN [Concomitant]
     Indication: Osteoporosis
     Dosage: 1 DF
     Dates: start: 20000820, end: 20000917
  32. DEXTROSE [Concomitant]
     Active Substance: DEXTROSE\DEXTROSE MONOHYDRATE
     Indication: Diabetes mellitus
     Route: 042
     Dates: start: 20000913, end: 20000913
  33. DEXTROSE [Concomitant]
     Active Substance: DEXTROSE\DEXTROSE MONOHYDRATE
     Indication: Cardiovascular disorder
  34. RINGERS SOLUTION [Concomitant]
     Active Substance: CALCIUM CHLORIDE\POTASSIUM CHLORIDE\SODIUM CHLORIDE
     Indication: Anaesthesia
     Route: 042
     Dates: start: 20000913, end: 20000914
  35. RINGERS SOLUTION [Concomitant]
     Active Substance: CALCIUM CHLORIDE\POTASSIUM CHLORIDE\SODIUM CHLORIDE
     Indication: Electrolyte depletion
  36. COTRIM [Concomitant]
     Active Substance: SULFAMETHOXAZOLE\TRIMETHOPRIM
     Indication: Urinary tract infection
     Dosage: 1 DF
     Dates: start: 20000916, end: 20000917
  37. NOREPINEPHRINE [Concomitant]
     Active Substance: NOREPINEPHRINE
     Indication: Diabetes mellitus
     Dates: start: 20000913, end: 20000913
  38. CALCIUM GLUCONATE [Concomitant]
     Active Substance: CALCIUM GLUCONATE
     Indication: Osteoporosis
     Dosage: 1 DOSAGE FORM
     Dates: start: 20000820, end: 20000917
  39. PREDNISONE [Concomitant]
     Active Substance: PREDNISONE
     Indication: Product used for unknown indication
  40. CALCIUM CHLORIDE [Concomitant]
     Active Substance: CALCIUM CHLORIDE
     Indication: Electrolyte depletion
     Dosage: UNKNOWN
     Dates: start: 20230913, end: 20230914
  41. CALCIUM CHLORIDE [Concomitant]
     Active Substance: CALCIUM CHLORIDE
     Indication: Fluid retention
  42. OMEPRAZOLE [Concomitant]
     Active Substance: OMEPRAZOLE
     Indication: Prophylaxis against gastrointestinal ulcer
     Route: 048
     Dates: start: 20000820, end: 20000917
  43. POTASSIUM CHLORIDE [Concomitant]
     Active Substance: POTASSIUM CHLORIDE
     Indication: Electrolyte depletion
     Dosage: ENDOTRACHEOPULM?ONARY INSTILLATION, ?SUSPENSION
     Dates: start: 20000913, end: 20000914
  44. POTASSIUM CHLORIDE [Concomitant]
     Active Substance: POTASSIUM CHLORIDE
     Indication: Fluid retention
  45. BAXTER HEALTHCARE RINGERS [Concomitant]
     Indication: Electrolyte depletion
     Dates: start: 20000913, end: 20000914
  46. SULFAMETHOXAZOLE [Concomitant]
     Active Substance: SULFAMETHOXAZOLE
  47. LORMETAZEPAM [Concomitant]
     Active Substance: LORMETAZEPAM
  48. SODIUM CHLORIDE [Concomitant]
  49. CALCIUM CITRATE [Concomitant]
     Active Substance: CALCIUM CITRATE
     Indication: Osteoporosis
     Dosage: 27 DF
     Route: 048
     Dates: start: 20000820, end: 20000917
  50. GLYBURIDE [Concomitant]
     Active Substance: GLYBURIDE
     Indication: Diabetes mellitus
     Dosage: 3 DF
     Route: 048
     Dates: start: 20000820, end: 20000917

REACTIONS (7)
  - Toxic epidermal necrolysis [Recovered/Resolved]
  - Erythema [Recovered/Resolved]
  - Blister [Recovered/Resolved]
  - Genital erosion [Recovered/Resolved]
  - Mouth ulceration [Recovered/Resolved]
  - Mucosal erosion [Recovered/Resolved]
  - Conjunctivitis [Recovered/Resolved]

NARRATIVE: CASE EVENT DATE: 20000916
